FAERS Safety Report 8339550-4 (Version None)
Quarter: 2012Q2

REPORT INFORMATION
  Report Type: 
  Country: None (occurrence: None)
  Receive Date: 20120507
  Receipt Date: 20120430
  Transmission Date: 20120825
  Serious: Yes (Hospitalization)
  Sender: FDA-Public Use
  Company Number: PHHY2012FR037552

PATIENT
  Sex: Male

DRUGS (2)
  1. VOLTAREN [Suspect]
     Indication: ANKYLOSING SPONDYLITIS
     Dates: start: 20010901
  2. ENBREL [Suspect]
     Indication: ANKYLOSING SPONDYLITIS
     Dosage: 50 MG ONCE A WEEK
     Dates: start: 20010901

REACTIONS (5)
  - MANIA [None]
  - DEHYDRATION [None]
  - PARANOIA [None]
  - TACHYPHRENIA [None]
  - INSOMNIA [None]
